FAERS Safety Report 19865063 (Version 2)
Quarter: 2022Q1

REPORT INFORMATION
  Report Type: Spontaneous
  Country: US (occurrence: US)
  Receive Date: 20210922
  Receipt Date: 20220303
  Transmission Date: 20220423
  Serious: Yes (Other)
  Sender: FDA-Public Use
  Company Number: US-GILEAD-2021-0548472

PATIENT
  Sex: Female
  Weight: 52.16 kg

DRUGS (18)
  1. ATRIPLA [Suspect]
     Active Substance: EFAVIRENZ\EMTRICITABINE\TENOFOVIR DISOPROXIL FUMARATE
     Indication: HIV infection
     Dosage: UNK
     Route: 048
     Dates: start: 2004, end: 201710
  2. TRUVADA [Suspect]
     Active Substance: EMTRICITABINE\TENOFOVIR DISOPROXIL FUMARATE
     Indication: HIV infection
     Dosage: UNK
     Route: 048
     Dates: start: 2004
  3. TRUVADA [Suspect]
     Active Substance: EMTRICITABINE\TENOFOVIR DISOPROXIL FUMARATE
     Dosage: UNK
     Route: 048
     Dates: start: 201710, end: 2018
  4. DESCOVY [Concomitant]
     Active Substance: EMTRICITABINE\TENOFOVIR ALAFENAMIDE FUMARATE
  5. KALETRA [Concomitant]
     Active Substance: LOPINAVIR\RITONAVIR
  6. NORVIR [Concomitant]
     Active Substance: RITONAVIR
  7. PREZCOBIX [Concomitant]
     Active Substance: COBICISTAT\DARUNAVIR ETHANOLATE
  8. TIVICAY [Concomitant]
     Active Substance: DOLUTEGRAVIR SODIUM
  9. FENTANYL [Concomitant]
     Active Substance: FENTANYL
  10. MIDAZOLAM [Concomitant]
     Active Substance: MIDAZOLAM
  11. PROPOFOL [Concomitant]
     Active Substance: PROPOFOL
  12. OXYCODONE [Concomitant]
     Active Substance: OXYCODONE
  13. NITROGLYCERIN [Concomitant]
     Active Substance: NITROGLYCERIN
  14. ALPRAZOLAM [Concomitant]
     Active Substance: ALPRAZOLAM
  15. PROMETHAZINE [Concomitant]
     Active Substance: PROMETHAZINE HYDROCHLORIDE
  16. VALTREX [Concomitant]
     Active Substance: VALACYCLOVIR HYDROCHLORIDE
  17. BACTRIM [Concomitant]
     Active Substance: SULFAMETHOXAZOLE\TRIMETHOPRIM
  18. VITAMIN D NOS [Concomitant]
     Active Substance: VITAMIN D NOS

REACTIONS (12)
  - Osteoporosis [Not Recovered/Not Resolved]
  - Skull fracture [Recovered/Resolved]
  - Facial bones fracture [Recovered/Resolved]
  - Bone density decreased [Unknown]
  - Emotional distress [Not Recovered/Not Resolved]
  - Anhedonia [Not Recovered/Not Resolved]
  - Anxiety [Not Recovered/Not Resolved]
  - Pain [Not Recovered/Not Resolved]
  - Ankle fracture [Not Recovered/Not Resolved]
  - Hand fracture [Recovered/Resolved]
  - Joint dislocation [Not Recovered/Not Resolved]
  - Mobility decreased [Unknown]

NARRATIVE: CASE EVENT DATE: 20180101
